FAERS Safety Report 6190105-X (Version None)
Quarter: 2009Q2

REPORT INFORMATION
  Report Type: 
  Country: None (occurrence: None)
  Receive Date: 20090513
  Receipt Date: 20090513
  Transmission Date: 20091009
  Serious: No
  Sender: FDA-Public Use
  Company Number: None

PATIENT
  Age: 68 Year
  Sex: Female
  Weight: 74.3899 kg

DRUGS (6)
  1. LISINOPRIL [Suspect]
     Indication: HYPERTENSION
     Dosage: 10MG/TWICE DAILY ORAL
     Route: 048
     Dates: start: 20090201, end: 20090415
  2. DILTIAZEM [Concomitant]
  3. SIMVASTATIN [Concomitant]
  4. COUMADIN [Concomitant]
  5. NEXIUM [Concomitant]
  6. TYLENOL [Concomitant]

REACTIONS (2)
  - BLOOD PRESSURE INCREASED [None]
  - PRODUCT SUBSTITUTION ISSUE [None]
